FAERS Safety Report 15352966 (Version 1)
Quarter: 2018Q3

REPORT INFORMATION
  Report Type: Report from Study
  Country: AU (occurrence: AU)
  Receive Date: 20180905
  Receipt Date: 20180905
  Transmission Date: 20181010
  Serious: Yes (Other)
  Sender: FDA-Public Use
  Company Number: AU-UCBSA-2018036828

PATIENT
  Age: 14 Year
  Sex: Female
  Weight: 58.9 kg

DRUGS (1)
  1. LEVETIRACETAM. [Suspect]
     Active Substance: LEVETIRACETAM
     Indication: EPILEPSY
     Dosage: MORNING AND NIGHT

REACTIONS (6)
  - Generalised tonic-clonic seizure [Unknown]
  - Depression [Unknown]
  - Cerebral disorder [Unknown]
  - Weight decreased [Unknown]
  - Somnolence [Unknown]
  - Fatigue [Unknown]
